FAERS Safety Report 6989598-7 (Version None)
Quarter: 2010Q3

REPORT INFORMATION
  Report Type: 
  Country: None (occurrence: None)
  Receive Date: 20100916
  Receipt Date: 20100211
  Transmission Date: 20110219
  Serious: Yes (Hospitalization)
  Sender: FDA-Public Use
  Company Number: TW-PFIZER INC-2009231488

PATIENT
  Sex: Male
  Weight: 83.1 kg

DRUGS (4)
  1. LAMOTRIGINE [Suspect]
     Indication: EPILEPSY
     Dosage: 25MG PER DAY
     Route: 048
     Dates: start: 20070814, end: 20070829
  2. LAMOTRIGINE [Suspect]
     Dosage: 50MG PER DAY
     Route: 048
     Dates: start: 20070830, end: 20070910
  3. LAMOTRIGINE [Suspect]
     Dosage: 75MG PER DAY
     Route: 048
     Dates: start: 20070911, end: 20070911
  4. LAMOTRIGINE [Suspect]
     Dosage: 100MG PER DAY
     Route: 048
     Dates: start: 20070912

REACTIONS (2)
  - FALL [None]
  - HEAD INJURY [None]
